FAERS Safety Report 4550385-0 (Version None)
Quarter: 2005Q1

REPORT INFORMATION
  Report Type: 
  Country: None (occurrence: None)
  Receive Date: 20041227
  Receipt Date: 20040907
  Transmission Date: 20050727
  Serious: No
  Sender: FDA-Public Use
  Company Number: US089971

PATIENT
  Age: 75 Year
  Sex: Male

DRUGS (7)
  1. ARANESP [Suspect]
     Indication: ANAEMIA
     Dosage: 1 IN 2 WEEKS
     Dates: start: 20040824
  2. VALSARTAN [Concomitant]
  3. VALSARTAN + HYDROCHLOROTHIAZIDE [Concomitant]
  4. ATENOLOL [Concomitant]
  5. AMLODIPINE BESYLATE [Concomitant]
  6. TERAZOSIN HYDROCHORIDE [Concomitant]
  7. ACETYLSALICYLIC ACID SRT [Concomitant]

REACTIONS (1)
  - DIZZINESS [None]
